FAERS Safety Report 8586580 (Version 2)
Quarter: 2012Q4

REPORT INFORMATION
  Report Type: 
  Country: CH (occurrence: CH)
  Receive Date: 20120530
  Receipt Date: 20120910
  Transmission Date: 20130627
  Serious: Yes (Death, Other)
  Sender: FDA-Public Use
  Company Number: CH-ROCHE-1070206

PATIENT

DRUGS (1)
  1. MABTHERA [Suspect]
     Indication: SYSTEMIC SCLEROSIS

REACTIONS (4)
  - Pneumonia [Fatal]
  - Cardiac failure [Fatal]
  - Infection [Unknown]
  - Serum sickness [Unknown]
